FAERS Safety Report 14092618 (Version 3)
Quarter: 2017Q4

REPORT INFORMATION
  Report Type: Spontaneous
  Country: JP (occurrence: JP)
  Receive Date: 20171016
  Receipt Date: 20171117
  Transmission Date: 20180321
  Serious: No
  Sender: FDA-Public Use
  Company Number: JP-EMD SERONO-8189934

PATIENT
  Age: 28 Year
  Sex: Female
  Weight: 78 kg

DRUGS (2)
  1. GONAL-F RFF [Suspect]
     Active Substance: FOLLITROPIN
     Dosage: DOSE WAS INCREASED FOUR TIMES ON AN UNKNOWN DATE.
     Route: 058
  2. GONAL-F RFF [Suspect]
     Active Substance: FOLLITROPIN
     Indication: OVARIAN FAILURE
     Route: 058

REACTIONS (2)
  - Therapeutic response decreased [Unknown]
  - Metrorrhagia [Recovered/Resolved]

NARRATIVE: CASE EVENT DATE: 20170227
